FAERS Safety Report 4807636-4 (Version None)
Quarter: 2005Q4

REPORT INFORMATION
  Report Type: 
  Country: None (occurrence: None)
  Receive Date: 20051024
  Receipt Date: 20051017
  Transmission Date: 20060501
  Serious: Yes (Life-Threatening)
  Sender: FDA-Public Use
  Company Number: 2005AC01629

PATIENT
  Age: 82 Year
  Sex: Female

DRUGS (1)
  1. LIDOCAINE [Suspect]
     Indication: VENTRICULAR ARRHYTHMIA

REACTIONS (4)
  - BLOOD PRESSURE SYSTOLIC DECREASED [None]
  - CARDIAC FAILURE [None]
  - CARDIOMYOPATHY [None]
  - PROCEDURAL COMPLICATION [None]
